FAERS Safety Report 5612558-5 (Version None)
Quarter: 2008Q1

REPORT INFORMATION
  Report Type: 
  Country: None (occurrence: None)
  Receive Date: 20080204
  Receipt Date: 20080124
  Transmission Date: 20080703
  Serious: Yes (Death, Other)
  Sender: FDA-Public Use
  Company Number: JP-JNJFOC-20080106105

PATIENT
  Sex: Female

DRUGS (9)
  1. FINIBAX [Suspect]
     Indication: CHRONIC RESPIRATORY DISEASE
     Route: 065
  2. FINIBAX [Suspect]
     Indication: INFECTION
     Route: 065
  3. BAKTAR [Suspect]
     Indication: DRUG USE FOR UNKNOWN INDICATION
     Route: 048
  4. METHYLPREDNISOLONE [Concomitant]
     Indication: CHRONIC RESPIRATORY DISEASE
     Route: 065
  5. METHYLPREDNISOLONE [Concomitant]
     Indication: INFECTION
     Route: 065
  6. PREDONINE [Concomitant]
     Indication: CHRONIC RESPIRATORY DISEASE
     Route: 048
  7. PREDONINE [Concomitant]
     Indication: INFECTION
     Route: 048
  8. TAKEPRON [Concomitant]
     Indication: DRUG USE FOR UNKNOWN INDICATION
     Route: 048
  9. ASPIRIN [Concomitant]
     Indication: DRUG USE FOR UNKNOWN INDICATION
     Route: 048

REACTIONS (3)
  - HEPATIC FUNCTION ABNORMAL [None]
  - PLATELET COUNT DECREASED [None]
  - PNEUMOCYSTIS JIROVECI PNEUMONIA [None]
